FAERS Safety Report 6743738-3 (Version None)
Quarter: 2010Q2

REPORT INFORMATION
  Report Type: 
  Country: None (occurrence: None)
  Receive Date: 20100527
  Receipt Date: 20100524
  Transmission Date: 20101027
  Serious: Yes (Hospitalization)
  Sender: FDA-Public Use
  Company Number: AU-B.I. PHARMACEUTICALS,INC./RIDGEFIELD-2010-AU-00412AU

PATIENT
  Sex: Female
  Weight: 59 kg

DRUGS (2)
  1. ASASANTIN SR [Suspect]
     Route: 048
     Dates: start: 20090808, end: 20090809
  2. LIPITOR [Concomitant]

REACTIONS (7)
  - DISORIENTATION [None]
  - HEADACHE [None]
  - HYPERHIDROSIS [None]
  - IRRITABILITY [None]
  - NAUSEA [None]
  - RESTLESSNESS [None]
  - VOMITING [None]
